FAERS Safety Report 4852756-1 (Version None)
Quarter: 2005Q4

REPORT INFORMATION
  Report Type: 
  Country: None (occurrence: None)
  Receive Date: 20051125
  Receipt Date: 20050906
  Transmission Date: 20060501
  Serious: Yes (Hospitalization)
  Sender: FDA-Public Use
  Company Number: HQWYE300808SEP05

PATIENT
  Sex: Male

DRUGS (1)
  1. ZOSYN [Suspect]
     Indication: INFECTION
     Dosage: 4.5 G 1X PER 12 HR,
     Dates: start: 20050101, end: 20050830

REACTIONS (3)
  - BLOOD ALKALINE PHOSPHATASE INCREASED [None]
  - JAUNDICE CHOLESTATIC [None]
  - LIVER FUNCTION TEST ABNORMAL [None]
